FAERS Safety Report 4876103-4 (Version None)
Quarter: 2006Q1

REPORT INFORMATION
  Report Type: 
  Country: None (occurrence: None)
  Receive Date: 20060106
  Receipt Date: 20060106
  Transmission Date: 20060701
  Serious: Yes (Hospitalization)
  Sender: FDA-Public Use
  Company Number: None

PATIENT
  Age: 70 Year
  Sex: Male

DRUGS (2)
  1. SILDENAFIL  50 MG [Suspect]
     Indication: CARDIAC FAILURE CONGESTIVE
     Dosage: 50 NG  TID PO
     Route: 048
     Dates: start: 20050714, end: 20060101
  2. SILDENAFIL  50 MG [Suspect]
     Indication: PULMONARY HYPERTENSION
     Dosage: 50 NG  TID PO
     Route: 048
     Dates: start: 20050714, end: 20060101

REACTIONS (1)
  - DEVICE MIGRATION [None]
